FAERS Safety Report 23082921 (Version 1)
Quarter: 2023Q4

REPORT INFORMATION
  Report Type: Report from Study
  Country: GB (occurrence: GB)
  Receive Date: 20231019
  Receipt Date: 20231019
  Transmission Date: 20240110
  Serious: Yes (Other)
  Sender: FDA-Public Use
  Company Number: GB-002147023-NVSC2023GB223132

PATIENT
  Age: 64 Year
  Sex: Female

DRUGS (1)
  1. MAYZENT [Suspect]
     Active Substance: SIPONIMOD
     Indication: Multiple sclerosis
     Dosage: 2 MG
     Route: 048
     Dates: start: 20211008

REACTIONS (6)
  - Facial paralysis [Unknown]
  - Deafness unilateral [Unknown]
  - Vision blurred [Unknown]
  - Skin discolouration [Unknown]
  - Sinusitis [Unknown]
  - Peripheral swelling [Unknown]
